FAERS Safety Report 18148890 (Version 1)
Quarter: 2020Q3

REPORT INFORMATION
  Report Type: Report from Study
  Country: US (occurrence: US)
  Receive Date: 20200814
  Receipt Date: 20200814
  Transmission Date: 20201103
  Serious: Yes (Other)
  Sender: FDA-Public Use
  Company Number: US-GILEAD-2020-0489252

PATIENT
  Age: 34 Year
  Sex: Female

DRUGS (3)
  1. SYMDEKO [Concomitant]
     Active Substance: IVACAFTOR\TEZACAFTOR
     Dosage: 1 YELLOW TABLET IN THE MORNING AND 1 BLUE TABLET IN THE EVENING
  2. AZTREONAM LYSINE [Suspect]
     Active Substance: AZTREONAM LYSINE
     Indication: CYSTIC FIBROSIS
     Dosage: 75 MG, TID
     Route: 065
  3. DUPIXENT [Concomitant]
     Active Substance: DUPILUMAB
     Dosage: INJECT 200 MG UNDER THE SKIN EVERY OTHER WEEK (AFTER INITIAL LOADING DOSE OF 400 MG).

REACTIONS (8)
  - Eye infection fungal [Recovered/Resolved]
  - Dry eye [Unknown]
  - Crying [Not Recovered/Not Resolved]
  - Migraine with aura [Not Recovered/Not Resolved]
  - Photophobia [Unknown]
  - Stress [Unknown]
  - Eye pain [Unknown]
  - Nausea [Unknown]

NARRATIVE: CASE EVENT DATE: 202006
